FAERS Safety Report 4599646-X (Version None)
Quarter: 2005Q1

REPORT INFORMATION
  Report Type: 
  Country: None (occurrence: None)
  Receive Date: 20050304
  Receipt Date: 20050304
  Transmission Date: 20050727
  Serious: Yes (Other)
  Sender: FDA-Public Use
  Company Number: None

PATIENT
  Sex: Male
  Weight: 167.8309 kg

DRUGS (1)
  1. LEXAPRO [Suspect]
     Indication: ANXIETY
     Dosage: 1 PILL DAILY
     Dates: start: 20050215

REACTIONS (3)
  - CHILLS [None]
  - DIARRHOEA [None]
  - MUSCLE SPASMS [None]
